FAERS Safety Report 7468532-X (Version None)
Quarter: 2011Q2

REPORT INFORMATION
  Report Type: 
  Country: None (occurrence: None)
  Receive Date: 20110509
  Receipt Date: 20110427
  Transmission Date: 20111010
  Serious: Yes (Other)
  Sender: FDA-Public Use
  Company Number: US-KINGPHARMUSA00001-K201100520

PATIENT
  Sex: Female
  Weight: 54.422 kg

DRUGS (6)
  1. FOSAMAX [Suspect]
  2. SYNTHROID [Suspect]
  3. CHANTIX [Suspect]
     Indication: SMOKING CESSATION THERAPY
     Dosage: UNK
     Dates: start: 20080101
  4. LYRICA [Suspect]
  5. COUMADIN [Concomitant]
  6. LEVOXYL [Suspect]
     Dosage: UNK

REACTIONS (8)
  - FEAR [None]
  - SWOLLEN TONGUE [None]
  - CEREBROVASCULAR ACCIDENT [None]
  - DEPRESSION [None]
  - ALOPECIA [None]
  - CRYING [None]
  - ABNORMAL BEHAVIOUR [None]
  - DRUG LEVEL INCREASED [None]
